FAERS Safety Report 6283703-6 (Version None)
Quarter: 2009Q3

REPORT INFORMATION
  Report Type: 
  Country: None (occurrence: None)
  Receive Date: 20090724
  Receipt Date: 20090528
  Transmission Date: 20100115
  Serious: No
  Sender: FDA-Public Use
  Company Number: US-ALEXION-A200900427

PATIENT
  Sex: Male
  Weight: 47.9 kg

DRUGS (6)
  1. SOLIRIS [Suspect]
     Indication: PAROXYSMAL NOCTURNAL HAEMOGLOBINURIA
     Dosage: 600 MG, QW X 4
     Route: 042
     Dates: start: 20090504, end: 20090526
  2. COLACE [Concomitant]
     Dosage: UNK
     Route: 048
  3. NEUPOGEN [Concomitant]
     Dosage: 2/W
  4. FOLIC ACID [Concomitant]
     Dosage: UNK
     Route: 048
  5. SEROQUEL [Concomitant]
     Dosage: UNK
     Route: 048
  6. EXJADE [Concomitant]
     Dosage: UNK
     Route: 048

REACTIONS (2)
  - BACK PAIN [None]
  - PRURITUS [None]
